FAERS Safety Report 10538534 (Version 2)
Quarter: 2014Q4

REPORT INFORMATION
  Report Type: Spontaneous
  Country: US (occurrence: US)
  Receive Date: 20141023
  Receipt Date: 20141023
  Transmission Date: 20150529
  Serious: Yes (Hospitalization, Other)
  Sender: FDA-Public Use
  Company Number: US-GLAXOSMITHKLINE-A0873071A

PATIENT
  Sex: Male

DRUGS (1)
  1. AVANDIA [Suspect]
     Active Substance: ROSIGLITAZONE MALEATE
     Indication: DIABETES MELLITUS
     Route: 048
     Dates: start: 20000501, end: 20010601

REACTIONS (9)
  - Coronary artery disease [Unknown]
  - Carotid artery stenosis [Unknown]
  - Cerebral infarction [Unknown]
  - Cerebral artery occlusion [Unknown]
  - Cardiac failure congestive [Unknown]
  - Cerebrovascular accident [Unknown]
  - Transient ischaemic attack [Unknown]
  - Ischaemic cardiomyopathy [Unknown]
  - Hypovolaemic shock [Unknown]
